FAERS Safety Report 20793954 (Version 5)
Quarter: 2022Q2

REPORT INFORMATION
  Report Type: Spontaneous
  Country: CA (occurrence: CA)
  Receive Date: 20220506
  Receipt Date: 20220617
  Transmission Date: 20220721
  Serious: Yes (Other)
  Sender: FDA-Public Use
  Company Number: CA-CELLTRION INC.-2022CA006049

PATIENT

DRUGS (8)
  1. INFLECTRA [Suspect]
     Active Substance: INFLIXIMAB-DYYB
     Indication: Ankylosing spondylitis
     Dosage: 400 MG AT 0, 2, 6 WEEKS, THEN Q 8 WEEKS
     Route: 042
     Dates: start: 20220411
  2. INFLECTRA [Suspect]
     Active Substance: INFLIXIMAB-DYYB
     Dosage: 400 MG AT 0, 2, 6 WEEKS, THEN Q 8 WEEKS
     Route: 042
     Dates: start: 20220425
  3. INFLECTRA [Suspect]
     Active Substance: INFLIXIMAB-DYYB
     Dosage: 400 MG AT 0, 2, 6 WEEKS, THEN Q 8 WEEKS
     Route: 042
     Dates: start: 20220524
  4. BENADRYL [Concomitant]
     Active Substance: DIPHENHYDRAMINE HYDROCHLORIDE
     Dosage: 50 MG
  5. SOLU-CORTEF [Concomitant]
     Active Substance: HYDROCORTISONE SODIUM SUCCINATE
     Dosage: 100 MG
  6. VIMOVO [Concomitant]
     Active Substance: ESOMEPRAZOLE MAGNESIUM\NAPROXEN
     Dosage: 1 DF DOSAGE INFO IS NOT AVAIALBLE
     Route: 065
  7. TYLENOL [Concomitant]
     Active Substance: ACETAMINOPHEN
     Dosage: UNK
     Route: 065
  8. TYLENOL WITH CODEINE [Concomitant]
     Active Substance: ACETAMINOPHEN\CODEINE PHOSPHATE
     Dosage: 1 DF DOSAGE INFO IS NOT AVAIALBLE
     Route: 065

REACTIONS (13)
  - Chills [Recovered/Resolved]
  - Feeling cold [Recovered/Resolved]
  - Pallor [Unknown]
  - Cyanosis [Recovered/Resolved]
  - Blood pressure increased [Unknown]
  - Body temperature increased [Unknown]
  - Heart rate increased [Unknown]
  - Condition aggravated [Unknown]
  - Lethargy [Unknown]
  - Dizziness [Unknown]
  - Vomiting [Unknown]
  - Hypotension [Unknown]
  - Heart rate irregular [Unknown]

NARRATIVE: CASE EVENT DATE: 20220425
